FAERS Safety Report 8597312-7 (Version None)
Quarter: 2012Q3

REPORT INFORMATION
  Report Type: 
  Country: None (occurrence: None)
  Receive Date: 20120816
  Receipt Date: 20120813
  Transmission Date: 20120928
  Serious: No
  Sender: FDA-Public Use
  Company Number: US-PFIZER INC-2012181543

PATIENT
  Age: 50 Year
  Sex: Female

DRUGS (5)
  1. PRISTIQ [Suspect]
     Dosage: UNK
     Route: 048
  2. PRISTIQ [Suspect]
     Indication: DEPRESSION
     Dosage: 50 MG, 1X/DAY, AT BEDTIME
     Route: 048
     Dates: start: 20090801
  3. LEXAPRO [Suspect]
     Dosage: UNK
  4. EFFEXOR [Concomitant]
     Dosage: UNK
     Dates: start: 20090918, end: 20091001
  5. LEVOTHYROXINE [Concomitant]
     Indication: HYPOTHYROIDISM
     Dosage: 75 UG, UNK

REACTIONS (1)
  - NAUSEA [None]
